FAERS Safety Report 11254629 (Version 4)
Quarter: 2019Q2

REPORT INFORMATION
  Report Type: Spontaneous
  Country: US (occurrence: US)
  Receive Date: 20150709
  Receipt Date: 20190624
  Transmission Date: 20190711
  Serious: Yes (Life-Threatening, Hospitalization, Other)
  Sender: FDA-Public Use
  Company Number: US-RB PHARMACEUTICALS LIMITED-RB-080893-2015

PATIENT
  Age: 21 Year
  Sex: Male

DRUGS (1)
  1. SUBOXONE [Suspect]
     Active Substance: BUPRENORPHINE HYDROCHLORIDE\NALOXONE HYDROCHLORIDE
     Indication: DRUG DEPENDENCE
     Dosage: TOOK 1/4 OF THE STRIP
     Route: 060

REACTIONS (13)
  - Rhabdomyolysis [Unknown]
  - Extrapyramidal disorder [Recovered/Resolved]
  - Delirium [Unknown]
  - Pneumomediastinum [Unknown]
  - Hallucination, auditory [Unknown]
  - Substance abuse [Unknown]
  - Drug detoxification [Unknown]
  - Oesophageal rupture [Recovered/Resolved]
  - Hallucination, visual [Unknown]
  - Hallucination, tactile [Unknown]
  - Drug screen positive [Unknown]
  - Drug withdrawal syndrome [Recovered/Resolved]
  - Acute kidney injury [Unknown]
